FAERS Safety Report 24695777 (Version 1)
Quarter: 2024Q4

REPORT INFORMATION
  Report Type: Spontaneous
  Country: IT (occurrence: IT)
  Receive Date: 20241204
  Receipt Date: 20241204
  Transmission Date: 20250115
  Serious: Yes (Other)
  Sender: AMGEN
  Company Number: IT-AMGEN-ITASP2024236122

PATIENT
  Age: 49 Year
  Sex: Male

DRUGS (2)
  1. BLINATUMOMAB [Suspect]
     Active Substance: BLINATUMOMAB
     Indication: B-cell type acute leukaemia
     Dosage: UNK
     Route: 065
  2. IMATINIB [Concomitant]
     Active Substance: IMATINIB
     Indication: B-cell type acute leukaemia
     Dosage: UNK

REACTIONS (1)
  - Acute graft versus host disease [Unknown]
